FAERS Safety Report 7486836-1 (Version None)
Quarter: 2011Q2

REPORT INFORMATION
  Report Type: 
  Country: None (occurrence: None)
  Receive Date: 20110517
  Receipt Date: 20110509
  Transmission Date: 20111010
  Serious: Yes (Other)
  Sender: FDA-Public Use
  Company Number: GB-AMGEN-GBRSP2011014597

PATIENT
  Age: 68 Year
  Sex: Male

DRUGS (6)
  1. VITAMIN A [Concomitant]
     Indication: OSTEOPOROSIS
     Dosage: UNK
     Dates: end: 20110208
  2. ANTIHYPERTENSIVES [Suspect]
     Indication: HYPERTENSION
     Dosage: UNK
  3. FENTANYL [Concomitant]
     Indication: PAIN
     Dosage: 25 MG, UNK
     Route: 058
  4. ALENDRONATE SODIUM [Concomitant]
     Indication: OSTEOPOROSIS
     Dosage: 70 MG, WEEKLY
     Dates: end: 20110208
  5. ENBREL [Suspect]
     Indication: ANKYLOSING SPONDYLITIS
     Dosage: 50 MG, WEEKLY
     Route: 058
     Dates: start: 20100201, end: 20110208
  6. CALCIUM CARBONATE [Concomitant]
     Indication: OSTEOPOROSIS
     Dosage: UNK
     Dates: end: 20110208

REACTIONS (9)
  - RENAL IMPAIRMENT [None]
  - ANKYLOSING SPONDYLITIS [None]
  - FATIGUE [None]
  - DRUG INEFFECTIVE [None]
  - TEMPERATURE INTOLERANCE [None]
  - LETHARGY [None]
  - DRY MOUTH [None]
  - DYSPNOEA [None]
  - THIRST [None]
